FAERS Safety Report 20098331 (Version 8)
Quarter: 2022Q2

REPORT INFORMATION
  Report Type: Report from Study
  Country: US (occurrence: US)
  Receive Date: 20211122
  Receipt Date: 20220406
  Transmission Date: 20220721
  Serious: Yes (Hospitalization, Other)
  Sender: FDA-Public Use
  Company Number: US-GILEAD-2021-0556989

PATIENT
  Age: 36 Year
  Sex: Female
  Weight: 172.4 kg

DRUGS (16)
  1. REMDESIVIR [Suspect]
     Active Substance: REMDESIVIR
     Indication: COVID-19
     Dosage: 200 MG, ONCE
     Route: 042
     Dates: start: 20211109, end: 20211109
  2. REMDESIVIR [Suspect]
     Active Substance: REMDESIVIR
     Dosage: 100 MG, QD
     Route: 042
     Dates: start: 20211110, end: 20211111
  3. INFLIXIMAB [Suspect]
     Active Substance: INFLIXIMAB
     Indication: COVID-19
     Dosage: 862 MG, ONCE
     Route: 042
     Dates: start: 20211110, end: 20211110
  4. PLACEBO [Suspect]
     Active Substance: UNSPECIFIED INGREDIENT
     Indication: COVID-19
     Dosage: 862 MG, ONCE
     Route: 042
     Dates: start: 20211110, end: 20211110
  5. DEXAMETHASONE [Concomitant]
     Active Substance: DEXAMETHASONE
  6. ENOXAPARIN [Concomitant]
     Active Substance: ENOXAPARIN
  7. GUAIFENESIN [Concomitant]
     Active Substance: GUAIFENESIN
  8. LEVOTHYROXINE [Concomitant]
     Active Substance: LEVOTHYROXINE
  9. PANTOPRAZOLE [Concomitant]
     Active Substance: PANTOPRAZOLE
  10. ACETAMINOPHEN [Concomitant]
     Active Substance: ACETAMINOPHEN
  11. RAMELTEON [Concomitant]
     Active Substance: RAMELTEON
  12. SERTRALINE HYDROCHLORIDE [Concomitant]
     Active Substance: SERTRALINE HYDROCHLORIDE
  13. ALOE VERA LEAF [Concomitant]
     Active Substance: ALOE VERA LEAF
  14. SODIUM CHLORIDE [Concomitant]
     Active Substance: SODIUM CHLORIDE
  15. POTASSIUM CHLORIDE [Concomitant]
     Active Substance: POTASSIUM CHLORIDE
  16. INSULIN LISPRO [Concomitant]
     Active Substance: INSULIN LISPRO

REACTIONS (1)
  - Bradycardia [Recovered/Resolved]

NARRATIVE: CASE EVENT DATE: 20211111
